FAERS Safety Report 9901517 (Version 2)
Quarter: 2014Q1

REPORT INFORMATION
  Report Type: Spontaneous
  Country: US (occurrence: US)
  Receive Date: 20140217
  Receipt Date: 20140217
  Transmission Date: 20141002
  Serious: No
  Sender: FDA-Public Use
  Company Number: US-GILEAD-2011-0042195

PATIENT
  Sex: Female

DRUGS (2)
  1. LETAIRIS [Suspect]
     Indication: PULMONARY HYPERTENSION
     Route: 048
     Dates: start: 20110708
  2. LETAIRIS [Suspect]
     Indication: RHEUMATOID ARTHRITIS

REACTIONS (5)
  - Malaise [Unknown]
  - Diarrhoea [Unknown]
  - Headache [Unknown]
  - Abdominal pain upper [Unknown]
  - Oedema peripheral [Unknown]
